FAERS Safety Report 8182756-8 (Version None)
Quarter: 2012Q1

REPORT INFORMATION
  Report Type: 
  Country: None (occurrence: None)
  Receive Date: 20120305
  Receipt Date: 20120224
  Transmission Date: 20120608
  Serious: Yes (Hospitalization)
  Sender: FDA-Public Use
  Company Number: US-BAYER-2011-067725

PATIENT
  Age: 27 Year
  Sex: Female
  Weight: 112.2 kg

DRUGS (15)
  1. HYDROXYZINE [Concomitant]
     Dosage: 50 MG, UNK
     Route: 048
     Dates: start: 20070514
  2. CEFDINIR [Concomitant]
     Dosage: 300 MG, UNK
     Route: 048
     Dates: start: 20070517
  3. POLYMYXIN [Concomitant]
     Dosage: EAR SOLUTION
     Dates: start: 20070517
  4. IMITREX [Concomitant]
     Indication: MIGRAINE
     Dosage: UNK
     Route: 048
     Dates: start: 20070514, end: 20070531
  5. CYCLOBENZAPRINE [Concomitant]
     Dosage: 10 MG, UNK
     Route: 048
     Dates: start: 20070521
  6. CEFOTAN [Concomitant]
  7. LORATADINE [Concomitant]
     Dosage: 10 MG, UNK
     Route: 048
     Dates: start: 20070520
  8. YAZ [Suspect]
     Indication: PREMENSTRUAL SYNDROME
     Dosage: UNK
     Dates: start: 20070328, end: 20070531
  9. TOPROL-XL [Concomitant]
  10. IBUPROFEN (ADVIL) [Concomitant]
     Route: 048
  11. FERREX [Concomitant]
     Dosage: 150 MG, UNK
     Route: 048
     Dates: start: 20070521
  12. FOLIC ACID [Concomitant]
  13. TRAMADOL HCL [Concomitant]
     Dosage: 50 MG, UNK
     Route: 048
     Dates: start: 20070517
  14. PROMETHAZINE [Concomitant]
     Dosage: 25 MG, UNK
     Route: 048
     Dates: start: 20070521
  15. NAPROXEN [Concomitant]
     Dosage: 550 MG, UNK
     Dates: start: 20070521

REACTIONS (12)
  - EMOTIONAL DISTRESS [None]
  - MIGRAINE [None]
  - NECK PAIN [None]
  - GENERAL PHYSICAL HEALTH DETERIORATION [None]
  - INJURY [None]
  - VISUAL IMPAIRMENT [None]
  - SUPERIOR SAGITTAL SINUS THROMBOSIS [None]
  - NAUSEA [None]
  - PAIN [None]
  - VERTIGO [None]
  - MENTAL DISORDER [None]
  - ANXIETY [None]
